FAERS Safety Report 15347189 (Version 2)
Quarter: 2018Q3

REPORT INFORMATION
  Report Type: Spontaneous
  Country: TW (occurrence: TW)
  Receive Date: 20180904
  Receipt Date: 20180914
  Transmission Date: 20181010
  Serious: Yes (Hospitalization, Other)
  Sender: FDA-Public Use
  Company Number: TW-ACTELION-A-CH2018-178306

PATIENT
  Age: 63 Year
  Sex: Female
  Weight: 54.5 kg

DRUGS (14)
  1. PREDNISOLONE. [Concomitant]
     Active Substance: PREDNISOLONE
     Indication: SYSTEMIC LUPUS ERYTHEMATOSUS
     Dosage: 12.5 MG, QD
     Route: 048
  2. PLAQUENIL [Concomitant]
     Active Substance: HYDROXYCHLOROQUINE SULFATE
     Indication: SYSTEMIC LUPUS ERYTHEMATOSUS
     Dosage: UNK, QD
     Route: 048
  3. REVATIO [Concomitant]
     Active Substance: SILDENAFIL CITRATE
     Indication: PULMONARY ARTERIAL HYPERTENSION
     Dosage: 20 MG, TID
     Route: 048
  4. SYMBICORT [Concomitant]
     Active Substance: BUDESONIDE\FORMOTEROL FUMARATE DIHYDRATE
  5. REVATIO [Concomitant]
     Active Substance: SILDENAFIL CITRATE
     Indication: CONNECTIVE TISSUE DISORDER
  6. BENZONATATE. [Concomitant]
     Active Substance: BENZONATATE
     Dosage: 100 MG, TID
     Route: 048
  7. BERODUAL [Concomitant]
     Active Substance: FENOTEROL HYDROBROMIDE\IPRATROPIUM BROMIDE
     Dosage: 10 ML, BID
     Route: 055
  8. OPSUMIT [Suspect]
     Active Substance: MACITENTAN
     Indication: PULMONARY ARTERIAL HYPERTENSION
     Dosage: 10 MG, OD
     Route: 048
     Dates: start: 20180807
  9. ORENITRAM [Concomitant]
     Active Substance: TREPROSTINIL
     Indication: PULMONARY ARTERIAL HYPERTENSION
     Dosage: UNK, QID
     Route: 048
  10. ETORICOXIB. [Concomitant]
     Active Substance: ETORICOXIB
     Dosage: 60 MG, QD
     Route: 048
  11. ORENITRAM [Concomitant]
     Active Substance: TREPROSTINIL
     Indication: CONNECTIVE TISSUE DISORDER
  12. CHLORZOXAZONE. [Concomitant]
     Active Substance: CHLORZOXAZONE
     Dosage: 250 MG, QD
     Route: 048
  13. OXYGEN. [Concomitant]
     Active Substance: OXYGEN
     Indication: INTERSTITIAL LUNG DISEASE
     Dosage: 3 L, QD
  14. VIARTRIL [Concomitant]
     Dosage: 1.5 G, QOD
     Route: 048

REACTIONS (12)
  - Tremor [Unknown]
  - Alanine aminotransferase increased [Unknown]
  - Interstitial lung disease [Unknown]
  - Dyspnoea [Unknown]
  - Oedema peripheral [Unknown]
  - Concomitant disease aggravated [Unknown]
  - Rales [Unknown]
  - Crepitations [Unknown]
  - Pneumonia [Unknown]
  - Autoimmune thyroiditis [Unknown]
  - Cough [Unknown]
  - Hyperthyroidism [Unknown]

NARRATIVE: CASE EVENT DATE: 201808
